FAERS Safety Report 5896626-9 (Version None)
Quarter: 2008Q3

REPORT INFORMATION
  Report Type: 
  Country: None (occurrence: None)
  Receive Date: 20080924
  Receipt Date: 20080918
  Transmission Date: 20090109
  Serious: Yes (Hospitalization)
  Sender: FDA-Public Use
  Company Number: AU-ABBOTT-08P-008-0477422-00

PATIENT
  Age: 66 Year
  Sex: Male

DRUGS (14)
  1. VALPROATE SODIUM [Suspect]
     Indication: EPILEPSY
     Dosage: BD
  2. VALPROATE SODIUM [Suspect]
     Dosage: BD
  3. PHENYTOIN [Concomitant]
     Indication: EPILEPSY
     Dosage: TDS
  4. CARBAMAZEPINE [Concomitant]
     Indication: EPILEPSY
     Dosage: 400 MG MANE, 200 MG MIDI, 400 MG NOCTE
  5. CARBAMAZEPINE [Concomitant]
     Dosage: 400 MG MANE, AND 600 MG NOCTE
  6. LEVETIRACETAM [Concomitant]
     Indication: EPILEPSY
     Dosage: BD
  7. ACETYLSALICYLIC ACID SRT [Concomitant]
     Indication: DRUG USE FOR UNKNOWN INDICATION
  8. CLOPIDOGREL [Concomitant]
     Indication: DRUG USE FOR UNKNOWN INDICATION
     Dosage: MIDI
  9. SIMVASTATIN [Concomitant]
     Indication: DRUG USE FOR UNKNOWN INDICATION
     Dosage: NOCTE
  10. METOPROLOL TARTRATE [Concomitant]
     Indication: DRUG USE FOR UNKNOWN INDICATION
     Dosage: BD
  11. PERINDOPRIL ERBUMINE [Concomitant]
     Indication: DRUG USE FOR UNKNOWN INDICATION
     Dosage: MANE
  12. AMLODIPINE MALEATE [Concomitant]
     Indication: DRUG USE FOR UNKNOWN INDICATION
     Dosage: MANE
  13. FUROSEMIDE [Concomitant]
     Indication: DRUG USE FOR UNKNOWN INDICATION
     Dosage: MANE
  14. SPIRONOLACTONE [Concomitant]
     Indication: DRUG USE FOR UNKNOWN INDICATION
     Dosage: MANE

REACTIONS (1)
  - DRUG TOXICITY [None]
